FAERS Safety Report 5422195-3 (Version None)
Quarter: 2007Q3

REPORT INFORMATION
  Report Type: 
  Country: None (occurrence: None)
  Receive Date: 20070821
  Receipt Date: 20070821
  Transmission Date: 20080115
  Serious: Yes (Hospitalization)
  Sender: FDA-Public Use
  Company Number: None

PATIENT
  Age: 73 Year
  Sex: Male
  Weight: 109 kg

DRUGS (1)
  1. WARFARIN SODIUM [Suspect]
     Indication: ATRIAL FIBRILLATION
     Dosage: MG EVERY DAY PO
     Route: 048
     Dates: start: 20061114, end: 20070605

REACTIONS (3)
  - CONFUSIONAL STATE [None]
  - INCORRECT DOSE ADMINISTERED [None]
  - INTERNATIONAL NORMALISED RATIO INCREASED [None]
